FAERS Safety Report 4357793-1 (Version None)
Quarter: 2004Q2

REPORT INFORMATION
  Report Type: 
  Country: None (occurrence: None)
  Receive Date: 20040513
  Receipt Date: 20040427
  Transmission Date: 20050107
  Serious: Yes (Other)
  Sender: FDA-Public Use
  Company Number: US-MERCK-0404USA02347

PATIENT
  Age: 53 Year
  Sex: Female
  Weight: 72 kg

DRUGS (3)
  1. FOSAMAX [Suspect]
     Indication: OSTEOPOROSIS
     Route: 048
     Dates: end: 20040422
  2. FEOSOL [Concomitant]
     Route: 048
  3. NONSTEROIDAL ANTI-INFLAMMATORY DRUG (UNSPECIFIED) [Concomitant]
     Route: 065
     Dates: end: 20030101

REACTIONS (1)
  - HEPATOCELLULAR DAMAGE [None]
